APPROVED DRUG PRODUCT: HYDRALAZINE HYDROCHLORIDE
Active Ingredient: HYDRALAZINE HYDROCHLORIDE
Strength: 25MG
Dosage Form/Route: TABLET;ORAL
Application: A200770 | Product #001 | TE Code: AA
Applicant: STRIDES PHARMA GLOBAL PTE LTD
Approved: May 3, 2013 | RLD: No | RS: No | Type: RX